FAERS Safety Report 4633940-9 (Version None)
Quarter: 2005Q2

REPORT INFORMATION
  Report Type: 
  Country: None (occurrence: None)
  Receive Date: 20050412
  Receipt Date: 20050412
  Transmission Date: 20051028
  Serious: Yes (Life-Threatening)
  Sender: FDA-Public Use
  Company Number: None

PATIENT
  Age: 4 Year
  Sex: Male
  Weight: 15.5 kg

DRUGS (4)
  1. VINCRISTINE [Suspect]
     Indication: ACUTE LYMPHOCYTIC LEUKAEMIA
     Dosage: 0.1 MG IVP
     Route: 042
     Dates: start: 20050301
  2. VINCRISTINE [Suspect]
     Indication: ACUTE LYMPHOCYTIC LEUKAEMIA
     Dosage: 0.1 MG IVP
     Route: 042
     Dates: start: 20050308
  3. VINCRISTINE [Suspect]
     Indication: ACUTE LYMPHOCYTIC LEUKAEMIA
     Dosage: 0.1 MG IVP
     Route: 042
     Dates: start: 20050315
  4. DECADRON [Suspect]

REACTIONS (3)
  - MYOPATHY [None]
  - STRIDOR [None]
  - VOCAL CORD DISORDER [None]
